FAERS Safety Report 20656470 (Version 1)
Quarter: 2022Q1

REPORT INFORMATION
  Report Type: Spontaneous
  Country: US (occurrence: US)
  Receive Date: 20220331
  Receipt Date: 20220331
  Transmission Date: 20220423
  Serious: Yes (Death, Hospitalization, Other)
  Sender: FDA-Public Use
  Company Number: US-BRISTOL-MYERS SQUIBB COMPANY-2022-010108

PATIENT
  Age: 77 Year
  Sex: Female
  Weight: 90.71 kg

DRUGS (11)
  1. REVLIMID [Suspect]
     Active Substance: LENALIDOMIDE
     Indication: Follicular lymphoma
     Dosage: DOSE : 20 MG;  FREQ : 21 DAYS ON AND OFF FOR 7
     Route: 048
     Dates: start: 20211129
  2. LEVOTHYROXINE [Concomitant]
     Active Substance: LEVOTHYROXINE
  3. AMLODIPINE [Concomitant]
     Active Substance: AMLODIPINE BESYLATE
  4. ATORVASTATIN [Concomitant]
     Active Substance: ATORVASTATIN
  5. BYSTOLIC [Concomitant]
     Active Substance: NEBIVOLOL HYDROCHLORIDE
  6. ESCITALOPRAM [Concomitant]
     Active Substance: ESCITALOPRAM OXALATE
  7. GLUCOSAMINE [Concomitant]
     Active Substance: GLUCOSAMINE
  8. HYDROCHLOROTHIAZIDE [Concomitant]
     Active Substance: HYDROCHLOROTHIAZIDE
  9. LANSOPRAZOLE [Concomitant]
     Active Substance: LANSOPRAZOLE
  10. OLMESARTAN [Concomitant]
     Active Substance: OLMESARTAN
  11. VITAMIN C [Concomitant]
     Active Substance: ASCORBIC ACID

REACTIONS (1)
  - Respiratory distress [Fatal]

NARRATIVE: CASE EVENT DATE: 20220212
